FAERS Safety Report 6010121-8 (Version None)
Quarter: 2008Q4

REPORT INFORMATION
  Report Type: 
  Country: None (occurrence: None)
  Receive Date: 20081218
  Receipt Date: 20081210
  Transmission Date: 20090506
  Serious: Yes (Other)
  Sender: FDA-Public Use
  Company Number: CA-ASTRAZENECA-2008UW27865

PATIENT
  Age: 64 Year
  Sex: Female

DRUGS (3)
  1. CRESTOR [Suspect]
     Route: 048
     Dates: start: 20081101
  2. REACTINE [Concomitant]
     Dosage: 1/2 TAB
     Route: 048
     Dates: start: 20030101
  3. LIPITOR [Concomitant]

REACTIONS (5)
  - DEHYDRATION [None]
  - DRY MOUTH [None]
  - HALLUCINATION [None]
  - HEADACHE [None]
  - THIRST [None]
